FAERS Safety Report 10231998 (Version 2)
Quarter: 2014Q2

REPORT INFORMATION
  Report Type: Report from Study
  Country: AU (occurrence: AU)
  Receive Date: 20140612
  Receipt Date: 20140612
  Transmission Date: 20141212
  Serious: Yes (Hospitalization)
  Sender: FDA-Public Use
  Company Number: AU-BRISTOL-MYERS SQUIBB COMPANY-20819850

PATIENT
  Age: 66 Year
  Sex: Male

DRUGS (4)
  1. BLINDED: IPILIMUMAB [Suspect]
     Indication: NON-SMALL CELL LUNG CANCER
     Dosage: LAST DOSE:1MAY14
     Route: 042
     Dates: start: 20140410
  2. PACLITAXEL [Suspect]
     Indication: NON-SMALL CELL LUNG CANCER
     Dosage: LAST DOSE:1MAY14
     Route: 042
     Dates: start: 20140227
  3. CARBOPLATIN [Suspect]
     Indication: NON-SMALL CELL LUNG CANCER
     Dosage: LAST DOSE:1MAY14
     Route: 042
     Dates: start: 20140227
  4. BLINDED: PLACEBO [Suspect]
     Indication: NON-SMALL CELL LUNG CANCER
     Dosage: LAST DOSE:1MAY14
     Route: 042
     Dates: start: 20140410

REACTIONS (2)
  - Rash [Recovered/Resolved with Sequelae]
  - Lung infection [Recovered/Resolved with Sequelae]
